FAERS Safety Report 10655151 (Version 1)
Quarter: 2014Q4

REPORT INFORMATION
  Report Type: Spontaneous
  Country: US (occurrence: None)
  Receive Date: 20141215
  Receipt Date: 20141215
  Transmission Date: 20150529
  Serious: No
  Sender: FDA-Public Use
  Company Number: None

PATIENT
  Age: 44 Year
  Sex: Male

DRUGS (1)
  1. DIAZEPAM. [Suspect]
     Active Substance: DIAZEPAM
     Indication: MENIERE^S DISEASE
     Dosage: 1 PILL, THREE TIMES DAILY, TAKEN BY MOUTH
     Route: 048

REACTIONS (4)
  - Feeling abnormal [None]
  - Paraesthesia [None]
  - Product quality issue [None]
  - Product formulation issue [None]

NARRATIVE: CASE EVENT DATE: 20141213
